FAERS Safety Report 14194346 (Version 1)
Quarter: 2017Q4

REPORT INFORMATION
  Report Type: Spontaneous
  Country: US (occurrence: US)
  Receive Date: 20171115
  Receipt Date: 20171115
  Transmission Date: 20180321
  Serious: Yes (Other)
  Sender: FDA-Public Use
  Company Number: None

PATIENT
  Age: 53 Year
  Sex: Female
  Weight: 105.3 kg

DRUGS (13)
  1. PROGESTERONE. [Concomitant]
     Active Substance: PROGESTERONE
  2. XYZAL [Concomitant]
     Active Substance: LEVOCETIRIZINE DIHYDROCHLORIDE
  3. PICATO [Suspect]
     Active Substance: INGENOL MEBUTATE
     Indication: ACTINIC KERATOSIS
     Dosage: ?          QUANTITY:1 CAPSULE(S);?
     Route: 061
     Dates: start: 20171114, end: 20171114
  4. MINIVELLE [Concomitant]
     Active Substance: ESTRADIOL
  5. SIMVASTATIN. [Concomitant]
     Active Substance: SIMVASTATIN
  6. LISINOPRIL. [Concomitant]
     Active Substance: LISINOPRIL
  7. VITAMIN D [Concomitant]
     Active Substance: CHOLECALCIFEROL
  8. MUPIRICIN CREAM [Concomitant]
  9. TRADJENTA [Concomitant]
     Active Substance: LINAGLIPTIN
  10. RANITIDINE. [Concomitant]
     Active Substance: RANITIDINE
  11. VICTOZA [Concomitant]
     Active Substance: LIRAGLUTIDE
  12. METFORMIN [Concomitant]
     Active Substance: METFORMIN HYDROCHLORIDE
  13. VITAMIN B12 [Concomitant]
     Active Substance: CYANOCOBALAMIN

REACTIONS (3)
  - Burning sensation [None]
  - Ocular hyperaemia [None]
  - Eyelid oedema [None]

NARRATIVE: CASE EVENT DATE: 20171114
